FAERS Safety Report 10147113 (Version 3)
Quarter: 2014Q2

REPORT INFORMATION
  Report Type: Report from Study
  Country: AU (occurrence: AU)
  Receive Date: 20140501
  Receipt Date: 20140513
  Transmission Date: 20141212
  Serious: Yes (Hospitalization, Other)
  Sender: FDA-Public Use
  Company Number: AU-VERTEX PHARMACEUTICALS INC-2014-002140

PATIENT
  Age: 58 Year
  Sex: Female
  Weight: 76 kg

DRUGS (5)
  1. TELAPREVIR [Suspect]
     Indication: HEPATITIS C
     Dosage: UNK
     Route: 048
     Dates: start: 20140211, end: 20140428
  2. PEGINTERFERON ALFA [Suspect]
     Indication: HEPATITIS C
     Dosage: 150 ?G, QW
     Route: 065
     Dates: start: 20140211, end: 20140428
  3. RIBAVIRIN [Suspect]
     Indication: HEPATITIS C
     Dosage: 400 MG, UNK
     Route: 065
     Dates: start: 20140415, end: 20140428
  4. RIBAVIRIN [Suspect]
     Dosage: UNK
     Route: 065
     Dates: start: 20140313
  5. RIBAVIRIN [Suspect]
     Dosage: UNK
     Dates: start: 20140211

REACTIONS (2)
  - Drug eruption [Not Recovered/Not Resolved]
  - Rash [Not Recovered/Not Resolved]
